FAERS Safety Report 9430949 (Version 1)
Quarter: 2013Q3

REPORT INFORMATION
  Report Type: Spontaneous
  Country: US (occurrence: US)
  Receive Date: 20130730
  Receipt Date: 20130730
  Transmission Date: 20140515
  Serious: No
  Sender: FDA-Public Use
  Company Number: US-ABBOTT-13P-163-1114960-00

PATIENT
  Sex: Male
  Weight: 86.26 kg

DRUGS (18)
  1. NIASPAN (COATED) [Suspect]
     Indication: LIPOPROTEIN (A) DECREASED
     Dates: start: 2008
  2. NIASPAN (COATED) [Suspect]
     Dates: end: 2010
  3. NIASPAN (COATED) [Suspect]
     Dosage: 1000MG IN THE MORNING AND 1500MG IN THE EVENING
     Dates: start: 2010, end: 2012
  4. NIASPAN (COATED) [Suspect]
     Dates: start: 201306, end: 201306
  5. NIASPAN (COATED) [Suspect]
     Dosage: 500MG IN THE MORNING AND 500MG IN THE EVENING
     Dates: start: 201306
  6. NORVASC [Concomitant]
     Indication: HYPERTENSION
  7. ASPIRIN [Concomitant]
     Indication: CARDIAC DISORDER
  8. ZYRTEC [Concomitant]
     Indication: HYPERSENSITIVITY
  9. EFFIENT [Concomitant]
     Indication: PLATELET DISORDER
  10. ALLEGRA [Concomitant]
     Indication: HYPERSENSITIVITY
  11. FOLBIC [Concomitant]
     Indication: SUPPLEMENTATION THERAPY
  12. LIPITOR [Concomitant]
     Indication: BLOOD CHOLESTEROL INCREASED
  13. COZAAR [Concomitant]
     Indication: CARDIAC DISORDER
  14. LOPRESSOR [Concomitant]
     Indication: CARDIAC DISORDER
  15. MUCINEX [Concomitant]
     Indication: LUNG DISORDER
  16. NEXIUM [Concomitant]
     Indication: GASTROOESOPHAGEAL REFLUX DISEASE
  17. FLOMAX [Concomitant]
     Indication: PROSTATOMEGALY
  18. ZANTAC [Concomitant]
     Indication: GASTROOESOPHAGEAL REFLUX DISEASE

REACTIONS (1)
  - Pruritus [Not Recovered/Not Resolved]
